FAERS Safety Report 16833618 (Version 1)
Quarter: 2019Q3

REPORT INFORMATION
  Report Type: Spontaneous
  Country: US (occurrence: US)
  Receive Date: 20190920
  Receipt Date: 20190920
  Transmission Date: 20191005
  Serious: Yes (Other)
  Sender: FDA-Public Use
  Company Number: US-VELOXIS PHARMACEUTICALS-2019VELUS-000459

PATIENT
  Age: 15 Year
  Sex: Male

DRUGS (1)
  1. ENVARSUS XR [Suspect]
     Active Substance: TACROLIMUS
     Indication: PRODUCT USED FOR UNKNOWN INDICATION
     Dosage: UNK
     Route: 065

REACTIONS (6)
  - Enterovirus infection [Unknown]
  - Blood pressure decreased [Unknown]
  - Asthenia [Unknown]
  - Muscular weakness [Unknown]
  - Hypertrophic cardiomyopathy [Unknown]
  - Dizziness [Unknown]
